FAERS Safety Report 16470648 (Version 7)
Quarter: 2023Q2

REPORT INFORMATION
  Report Type: Report from Study
  Country: DE (occurrence: DE)
  Receive Date: 20190624
  Receipt Date: 20230613
  Transmission Date: 20230722
  Serious: Yes (Life-Threatening, Hospitalization, Other)
  Sender: FDA-Public Use
  Company Number: DE-BRISTOL-MYERS SQUIBB COMPANY-BMS-2019-061085

PATIENT
  Age: 63 Year
  Sex: Male
  Weight: 55.6 kg

DRUGS (61)
  1. NIVOLUMAB [Suspect]
     Active Substance: NIVOLUMAB
     Indication: Malignant melanoma
     Dosage: 189
     Dates: start: 20180928, end: 20180928
  2. NIVOLUMAB [Suspect]
     Active Substance: NIVOLUMAB
     Indication: Lung neoplasm malignant
     Dosage: 189
     Dates: start: 20181012, end: 20181012
  3. NIVOLUMAB [Suspect]
     Active Substance: NIVOLUMAB
     Dosage: 189
     Dates: start: 20181026, end: 20181109
  4. NIVOLUMAB [Suspect]
     Active Substance: NIVOLUMAB
     Dosage: 195
     Dates: start: 20181123, end: 20181206
  5. NIVOLUMAB [Suspect]
     Active Substance: NIVOLUMAB
     Dosage: 198
     Dates: start: 20181220, end: 20181220
  6. NIVOLUMAB [Suspect]
     Active Substance: NIVOLUMAB
     Dosage: 198
     Dates: start: 20190104, end: 20190104
  7. NIVOLUMAB [Suspect]
     Active Substance: NIVOLUMAB
     Dosage: 204
     Dates: start: 20190118, end: 20190118
  8. NIVOLUMAB [Suspect]
     Active Substance: NIVOLUMAB
     Dosage: 204 ABSENT, Q2WK
     Dates: start: 20190131, end: 20190131
  9. NIVOLUMAB [Suspect]
     Active Substance: NIVOLUMAB
     Dosage: 204 ABSENT, Q2WK
     Dates: start: 20190214, end: 20190228
  10. NIVOLUMAB [Suspect]
     Active Substance: NIVOLUMAB
     Dosage: 228 ABSENT, Q2WK
     Dates: start: 20190315, end: 20190315
  11. NIVOLUMAB [Suspect]
     Active Substance: NIVOLUMAB
     Dosage: 228 ABSENT, Q2WK
     Dates: start: 20190329, end: 20190329
  12. NIVOLUMAB [Suspect]
     Active Substance: NIVOLUMAB
     Dosage: 204 ABSENT, Q2WK
     Dates: start: 20190412, end: 20190412
  13. NIVOLUMAB [Suspect]
     Active Substance: NIVOLUMAB
     Dosage: 186 ABSENT, Q2WK
     Dates: start: 20190529, end: 20190529
  14. NIVOLUMAB [Suspect]
     Active Substance: NIVOLUMAB
     Dosage: 186 ABSENT, Q2WK
     Dates: start: 20190613, end: 20190613
  15. NIVOLUMAB [Suspect]
     Active Substance: NIVOLUMAB
     Dosage: 219 ABSENT, Q2WK
     Dates: start: 20190628, end: 20190628
  16. NIVOLUMAB [Suspect]
     Active Substance: NIVOLUMAB
     Dosage: 195 ABSENT, Q2WK
     Dates: start: 20190711, end: 20190711
  17. NIVOLUMAB [Suspect]
     Active Substance: NIVOLUMAB
     Dosage: 228 ABSENT, Q2WK
     Dates: start: 20190726, end: 20190726
  18. NIVOLUMAB [Suspect]
     Active Substance: NIVOLUMAB
     Dosage: 201 ABSENT, Q2WK
     Dates: start: 20190809, end: 20190906
  19. NIVOLUMAB [Suspect]
     Active Substance: NIVOLUMAB
     Dosage: 198 ABSENT, Q2WK
     Dates: start: 20190923, end: 20191007
  20. NIVOLUMAB [Suspect]
     Active Substance: NIVOLUMAB
     Dosage: 228 ABSENT, Q2WK
     Dates: start: 20191021, end: 20191104
  21. NIVOLUMAB [Suspect]
     Active Substance: NIVOLUMAB
     Dosage: 198 ABSENT, Q2WK
     Dates: start: 20191118, end: 20191202
  22. NIVOLUMAB [Suspect]
     Active Substance: NIVOLUMAB
     Dosage: 228 ABSENT, Q2WK
     Dates: start: 20191216, end: 20191216
  23. NIVOLUMAB [Suspect]
     Active Substance: NIVOLUMAB
     Dosage: 207 ABSENT, Q2WK
     Dates: start: 20200127, end: 20200127
  24. NIVOLUMAB [Suspect]
     Active Substance: NIVOLUMAB
     Dosage: 210 ABSENT, Q2WK
     Dates: start: 20200210, end: 20200210
  25. NIVOLUMAB [Suspect]
     Active Substance: NIVOLUMAB
     Dosage: 216 ABSENT, Q2WK
     Dates: start: 20200224, end: 20200309
  26. NIVOLUMAB [Suspect]
     Active Substance: NIVOLUMAB
     Dosage: 210 ABSENT, Q2WK
     Dates: start: 20200327, end: 20200327
  27. NIVOLUMAB [Suspect]
     Active Substance: NIVOLUMAB
     Dosage: 219 ABSENT, Q2WK
     Dates: start: 20200414, end: 20200414
  28. NIVOLUMAB [Suspect]
     Active Substance: NIVOLUMAB
     Dosage: 228 ABSENT, Q2WK
     Dates: start: 20200427, end: 20200427
  29. NIVOLUMAB [Suspect]
     Active Substance: NIVOLUMAB
     Dosage: 219 ABSENT, Q2WK
     Dates: start: 20200522, end: 20200605
  30. NIVOLUMAB [Suspect]
     Active Substance: NIVOLUMAB
     Dosage: 222 ABSENT, Q2WK
     Dates: start: 20200622, end: 20200706
  31. NIVOLUMAB [Suspect]
     Active Substance: NIVOLUMAB
     Dosage: 219 ABSENT, Q2WK
     Dates: start: 20200720, end: 20200720
  32. NIVOLUMAB [Suspect]
     Active Substance: NIVOLUMAB
     Dosage: 228 ABSENT, Q2WK
     Dates: start: 20200803, end: 20200914
  33. NIVOLUMAB [Suspect]
     Active Substance: NIVOLUMAB
     Dosage: 219 ABSENT, Q2WK
     Dates: start: 20200928, end: 20200928
  34. NIVOLUMAB [Suspect]
     Active Substance: NIVOLUMAB
     Dosage: 228 ABSENT, Q2WK
     Dates: start: 20201012, end: 20201123
  35. NIVOLUMAB [Suspect]
     Active Substance: NIVOLUMAB
     Dosage: 224.1 ABSENT, Q2WK
     Dates: start: 20201207, end: 20201207
  36. NIVOLUMAB [Suspect]
     Active Substance: NIVOLUMAB
     Dosage: 225 ABSENT, Q2WK
     Dates: start: 20201221, end: 20201221
  37. NIVOLUMAB [Suspect]
     Active Substance: NIVOLUMAB
     Dosage: 480 ABSENT, Q2WK
     Dates: start: 20210215, end: 20210215
  38. NIVOLUMAB [Suspect]
     Active Substance: NIVOLUMAB
     Dosage: 480 ABSENT, Q4WK
     Dates: start: 20210315, end: 20220802
  39. ASPIRIN [Concomitant]
     Active Substance: ASPIRIN
     Indication: Product used for unknown indication
     Dosage: 100 MILLIGRAM, QD
     Route: 048
     Dates: start: 1998
  40. SIMVASTATIN [Concomitant]
     Active Substance: SIMVASTATIN
     Indication: Product used for unknown indication
     Dosage: 20 MILLIGRAM, QD
     Route: 048
  41. RAMIPRIL [Concomitant]
     Active Substance: RAMIPRIL
     Indication: Product used for unknown indication
     Dosage: 2.5 MILLIGRAM, QD
     Route: 048
  42. RAMIPRIL [Concomitant]
     Active Substance: RAMIPRIL
     Dosage: 2.5 MILLIGRAM, QD
     Route: 048
     Dates: end: 20190513
  43. RAMIPRIL [Concomitant]
     Active Substance: RAMIPRIL
     Dosage: 2.5 MILLIGRAM, QD
     Route: 048
     Dates: start: 20190521
  44. SPIRIVA [Concomitant]
     Active Substance: TIOTROPIUM BROMIDE MONOHYDRATE
     Indication: Product used for unknown indication
     Dosage: 2.5 MICROGRAM, QD
     Route: 048
     Dates: start: 20190521
  45. ISOSORBIDE MONONITRATE [Concomitant]
     Active Substance: ISOSORBIDE MONONITRATE
     Indication: Product used for unknown indication
     Dosage: 40 MILLIGRAM, QD
     Route: 048
     Dates: start: 1998, end: 20190429
  46. ISOSORBIDE MONONITRATE [Concomitant]
     Active Substance: ISOSORBIDE MONONITRATE
     Dosage: 40 MILLIGRAM, QD
     Route: 048
     Dates: start: 20190521
  47. METAMIZOLE SODIUM [Concomitant]
     Active Substance: METAMIZOLE SODIUM
     Indication: Pain
     Dosage: 500 MILLIGRAM, QD
     Route: 048
  48. IBUPROFEN [Concomitant]
     Active Substance: IBUPROFEN
     Indication: Pain
     Dosage: 600 MILLIGRAM, QD
     Route: 048
     Dates: end: 20181012
  49. LACTULOSE [Concomitant]
     Active Substance: LACTULOSE
     Indication: Constipation
     Dosage: 1 OTHER 1 OTHER
     Route: 048
     Dates: end: 20181012
  50. PALLADONE [Concomitant]
     Active Substance: HYDROMORPHONE HYDROCHLORIDE
     Indication: Pain
     Dosage: 2.6 MILLIGRAM
     Route: 048
     Dates: end: 20190429
  51. PALLADONE [Concomitant]
     Active Substance: HYDROMORPHONE HYDROCHLORIDE
     Dosage: 2.6 MILLIGRAM
     Route: 048
     Dates: start: 20190521, end: 20191104
  52. PALLADONE [Concomitant]
     Active Substance: HYDROMORPHONE HYDROCHLORIDE
     Dosage: 8 MILLIGRAM
     Route: 048
     Dates: end: 20191104
  53. LEVOTHYROXINE [Concomitant]
     Active Substance: LEVOTHYROXINE
     Indication: Product used for unknown indication
     Dosage: 25 MICROGRAM, QD
     Route: 048
     Dates: start: 20190214
  54. MIRTAZAPINE [Concomitant]
     Active Substance: MIRTAZAPINE
     Indication: Insomnia
     Dosage: 15 MILLIGRAM, QD
     Route: 048
     Dates: start: 20190329, end: 20190429
  55. TORSEMIDE [Concomitant]
     Active Substance: TORSEMIDE
     Indication: Product used for unknown indication
     Dosage: 5 MILLIGRAM, QD
     Route: 048
     Dates: start: 20190513
  56. TIOTROPIUM BROMIDE [Concomitant]
     Active Substance: TIOTROPIUM BROMIDE
     Indication: Product used for unknown indication
     Dosage: 18 MICROGRAM, QD
     Route: 048
     Dates: start: 20190426
  57. CHOLECALCIFEROL [Concomitant]
     Active Substance: CHOLECALCIFEROL
     Indication: Vitamin D deficiency
     Dosage: 20000 INTERNATIONAL UNIT, TWICE PER WEEK
     Route: 048
     Dates: start: 20190513
  58. BETA-LACTAMASE INHIBITORS [Concomitant]
     Indication: Pneumonia
     Dosage: 1 GRAM, QD
     Route: 048
     Dates: start: 20190428, end: 20190503
  59. AMPICILLIN [Concomitant]
     Active Substance: AMPICILLIN
     Indication: Pneumonia
     Dosage: 2 GRAM, QD
     Route: 048
     Dates: start: 20190428, end: 20190503
  60. CLARITHROMYCIN [Concomitant]
     Active Substance: CLARITHROMYCIN
     Indication: Pneumonia
     Dosage: 500 MILLIGRAM, QD
     Route: 048
     Dates: start: 20190427, end: 20190501
  61. PANTOPRAZOLE [Concomitant]
     Active Substance: PANTOPRAZOLE
     Indication: Prophylaxis
     Dosage: 40 MILLIGRAM, QD
     Route: 048
     Dates: start: 20190426

REACTIONS (3)
  - Immune-mediated pancreatitis [Recovered/Resolved with Sequelae]
  - Hypothyroidism [Unknown]
  - Off label use [Unknown]

NARRATIVE: CASE EVENT DATE: 20190426
